FAERS Safety Report 15971259 (Version 25)
Quarter: 2020Q3

REPORT INFORMATION
  Report Type: Report from Study
  Country: CO (occurrence: CO)
  Receive Date: 20190215
  Receipt Date: 20200911
  Transmission Date: 20201102
  Serious: Yes (Hospitalization, Other)
  Sender: FDA-Public Use
  Company Number: PHHY2019CO023675

PATIENT
  Age: 46 Year
  Sex: Female
  Weight: 87.7 kg

DRUGS (8)
  1. REVOLADE [Suspect]
     Active Substance: ELTROMBOPAG
     Indication: APLASTIC ANAEMIA
     Dosage: 50 MG, QD
     Route: 048
     Dates: start: 20181130, end: 20190409
  2. LOSARTAN. [Suspect]
     Active Substance: LOSARTAN
     Indication: HYPERTENSION
     Dosage: 50 MG, Q12H
     Route: 048
  3. DANAZOL. [Concomitant]
     Active Substance: DANAZOL
     Indication: APLASTIC ANAEMIA
     Dosage: UNK
     Route: 048
  4. ACETAMINOPHEN. [Concomitant]
     Active Substance: ACETAMINOPHEN
     Indication: PYREXIA
     Dosage: 500 MG, PRN
     Route: 048
  5. REVOLADE [Suspect]
     Active Substance: ELTROMBOPAG
     Dosage: 50 MG, QD
     Route: 048
  6. IRON [Concomitant]
     Active Substance: IRON
     Indication: PRODUCT USED FOR UNKNOWN INDICATION
     Dosage: UNK UNK, QD
     Route: 048
  7. CYCLOSPORINE. [Suspect]
     Active Substance: CYCLOSPORINE
     Indication: APLASTIC ANAEMIA
     Dosage: UNK UNK, Q8H
     Route: 048
  8. FOLIC ACID. [Concomitant]
     Active Substance: FOLIC ACID
     Indication: PRODUCT USED FOR UNKNOWN INDICATION
     Dosage: UNK UNK, QD
     Route: 048

REACTIONS (29)
  - General physical health deterioration [Unknown]
  - Influenza [Unknown]
  - Peripheral swelling [Recovered/Resolved]
  - Back pain [Unknown]
  - Joint injury [Recovered/Resolved]
  - Platelet count decreased [Unknown]
  - Dizziness [Unknown]
  - Biliary colic [Unknown]
  - Vomiting [Unknown]
  - Cholelithiasis [Unknown]
  - Visual impairment [Unknown]
  - Haemorrhage [Unknown]
  - Pain [Unknown]
  - Fall [Unknown]
  - Mass [Unknown]
  - Malaise [Unknown]
  - Bone pain [Unknown]
  - Fall [Recovered/Resolved]
  - Abdominal injury [Recovered/Resolved]
  - Headache [Unknown]
  - Arthralgia [Unknown]
  - Joint swelling [Recovered/Resolved]
  - Limb injury [Recovered/Resolved]
  - Gingival bleeding [Unknown]
  - Ear discomfort [Unknown]
  - Contusion [Recovered/Resolved]
  - Fatigue [Unknown]
  - Dry mouth [Not Recovered/Not Resolved]
  - Product dose omission issue [Unknown]

NARRATIVE: CASE EVENT DATE: 20181009
